FAERS Safety Report 8756229 (Version 2)
Quarter: 2012Q4

REPORT INFORMATION
  Report Type: Spontaneous
  Country: US (occurrence: None)
  Receive Date: 20120816
  Receipt Date: 20120830
  Transmission Date: 20130627
  Serious: Yes (Hospitalization)
  Sender: FDA-Public Use
  Company Number: 2012SGN00345

PATIENT
  Age: 83 Year
  Sex: Male
  Weight: 87.1 kg

DRUGS (7)
  1. BRENTUXIMAB VEDOTIN [Suspect]
     Indication: DIFFUSE LARGE B-CELL LYMPHOMA
     Route: 042
     Dates: start: 20120411, end: 20120613
  2. ASPIRIN (ASPIRIN) [Concomitant]
  3. RAMIPRIL (RAMIPRIL) [Concomitant]
  4. COMPAZINE (PROCHLORPERAZINE MALEATE) [Concomitant]
  5. LIPITOR (ATORVASTATIN CALCIUM) [Concomitant]
  6. CLONEZEPAM (CLONAZEPAM) [Concomitant]
  7. OMEPRAZOLE (OMEPRAZOLE) [Concomitant]

REACTIONS (3)
  - Chills [None]
  - Pyrexia [None]
  - Infection [None]
